FAERS Safety Report 23913373 (Version 2)
Quarter: 2024Q2

REPORT INFORMATION
  Report Type: Spontaneous
  Country: US (occurrence: US)
  Receive Date: 20240529
  Receipt Date: 20240611
  Transmission Date: 20240716
  Serious: Yes (Other)
  Sender: FDA-Public Use
  Company Number: US-TEVA-VS-3201931

PATIENT
  Age: 62 Year
  Sex: Female

DRUGS (2)
  1. PROPYLTHIOURACIL [Suspect]
     Active Substance: PROPYLTHIOURACIL
     Indication: Graves^ disease
     Route: 065
  2. TRIAMCINOLONE ACETONIDE [Suspect]
     Active Substance: TRIAMCINOLONE ACETONIDE
     Indication: Lupus-like syndrome
     Route: 061

REACTIONS (2)
  - Lupus-like syndrome [Recovering/Resolving]
  - Drug ineffective [Unknown]
